FAERS Safety Report 9690140 (Version 1)
Quarter: 2013Q4

REPORT INFORMATION
  Report Type: Report from Study
  Country: US (occurrence: US)
  Receive Date: 20131115
  Receipt Date: 20131115
  Transmission Date: 20140711
  Serious: Yes (Hospitalization)
  Sender: FDA-Public Use
  Company Number: PHEH2013US023561

PATIENT
  Age: 69 Year
  Sex: Male

DRUGS (10)
  1. TASIGNA [Suspect]
     Indication: CHRONIC MYELOID LEUKAEMIA
     Dosage: UNK
     Route: 048
     Dates: start: 20131014
  2. CORTICOSTEROIDS [Suspect]
     Indication: MUSCLE DISORDER
     Route: 048
  3. LYRICA [Concomitant]
     Indication: NEUROPATHY PERIPHERAL
     Dosage: UNK
     Dates: end: 20131010
  4. FUROSEMIDE [Concomitant]
     Dosage: UNK
     Dates: end: 20131010
  5. PRAVASTAN [Concomitant]
     Dosage: UNK
     Dates: end: 20131010
  6. PRO-AIR [Concomitant]
     Dosage: UNK
     Dates: end: 20131010
  7. KRILL OIL [Concomitant]
     Dosage: UNK
     Dates: end: 20131010
  8. POTASSIUM [Concomitant]
  9. MACROBID [Concomitant]
     Dosage: UNK
     Dates: end: 20131010
  10. VITAMIN D [Concomitant]

REACTIONS (5)
  - Back disorder [Unknown]
  - Blood glucose increased [Unknown]
  - White blood cell count increased [Unknown]
  - Blood cholesterol increased [Unknown]
  - Asthma [Unknown]
